FAERS Safety Report 7709301-2 (Version None)
Quarter: 2011Q3

REPORT INFORMATION
  Report Type: 
  Country: None (occurrence: None)
  Receive Date: 20110825
  Receipt Date: 20110519
  Transmission Date: 20111222
  Serious: No
  Sender: FDA-Public Use
  Company Number: US-TYCO HEALTHCARE/MALLINCKRODT-T201100774

PATIENT
  Sex: Female
  Weight: 58.957 kg

DRUGS (7)
  1. OXYBUTYNIN [Concomitant]
     Indication: BLADDER DISORDER
  2. NEURONTIN [Concomitant]
     Indication: NEURALGIA
  3. FENTANYL-100 [Suspect]
     Indication: PAIN
     Dosage: 75 UG/HR Q 72 HOURS
     Route: 062
     Dates: start: 20110406
  4. PROPRANOLOL [Concomitant]
     Indication: HEADACHE
  5. CYMBALTA [Concomitant]
     Indication: DEPRESSION
  6. OXYCODONE HCL [Concomitant]
     Indication: PAIN
  7. ZANAFLEX [Concomitant]
     Indication: MUSCULOSKELETAL DISCOMFORT

REACTIONS (1)
  - DRUG EFFECT DECREASED [None]
